FAERS Safety Report 20590373 (Version 1)
Quarter: 2022Q1

REPORT INFORMATION
  Report Type: Spontaneous
  Country: US (occurrence: None)
  Receive Date: 20220313
  Receipt Date: 20220313
  Transmission Date: 20220423
  Serious: Yes (Disabling)
  Sender: FDA-Public Use
  Company Number: None

PATIENT
  Age: 35 Year
  Sex: Female

DRUGS (1)
  1. MACROBID [Suspect]
     Active Substance: NITROFURANTOIN\NITROFURANTOIN MONOHYDRATE
     Dates: start: 20200406, end: 20200409

REACTIONS (5)
  - Insomnia [None]
  - Hypoaesthesia [None]
  - Dyskinesia [None]
  - Skin fissures [None]
  - Nervous system disorder [None]

NARRATIVE: CASE EVENT DATE: 20200406
